FAERS Safety Report 4477828-5 (Version None)
Quarter: 2004Q3

REPORT INFORMATION
  Report Type: 
  Country: None (occurrence: None)
  Receive Date: 20040923
  Receipt Date: 20040617
  Transmission Date: 20050211
  Serious: No
  Sender: FDA-Public Use
  Company Number: USA040670387

PATIENT
  Age: 78 Year
  Sex: Female
  Weight: 53 kg

DRUGS (8)
  1. FORTEO [Suspect]
     Indication: OSTEOPOROSIS
     Dosage: 20 UG/1 DAY
     Dates: start: 20040301
  2. ENALAPRIL W/HYDROCHLOROTHIAZIDE [Concomitant]
  3. METFORMIN HCL [Concomitant]
  4. AVANDIA [Concomitant]
  5. GLIPIZIDE [Concomitant]
  6. PREVACID [Concomitant]
  7. CALTRATE (CALCIUM CARBONATE) [Concomitant]
  8. ACTONEL [Concomitant]

REACTIONS (1)
  - FAECAL INCONTINENCE [None]
